FAERS Safety Report 13036253 (Version 1)
Quarter: 2016Q4

REPORT INFORMATION
  Report Type: Spontaneous
  Country: US (occurrence: US)
  Receive Date: 20161216
  Receipt Date: 20161216
  Transmission Date: 20170207
  Serious: Yes (Death, Hospitalization, Other)
  Sender: FDA-Public Use
  Company Number: US-009507513-1612USA006365

PATIENT
  Age: 73 Year

DRUGS (4)
  1. DECADRON [Suspect]
     Active Substance: DEXAMETHASONE
     Indication: PLASMA CELL MYELOMA
     Dosage: DOSE OR AMOUNT: 40, WEEKLY
     Route: 048
     Dates: start: 20100803, end: 20100921
  2. PREDNISONE. [Suspect]
     Active Substance: PREDNISONE
     Indication: PLASMA CELL MYELOMA
     Dosage: DOSE OR AMOUNT: 60; 6 DAYS AND TAPER DOWN
     Route: 048
     Dates: start: 20100703, end: 20100723
  3. VELCADE [Suspect]
     Active Substance: BORTEZOMIB
     Indication: PLASMA CELL MYELOMA
     Dosage: DOSE OR AMOUNT: 1.3, QW
     Route: 048
     Dates: start: 20100706, end: 20100921
  4. ALKERAN (MELPHALAN HYDROCHLORIDE) [Suspect]
     Active Substance: MELPHALAN HYDROCHLORIDE
     Indication: PLASMA CELL MYELOMA
     Dosage: DOSE OR AMOUNT: 12, DAILY X 4 DAYS QUE 6 WEEKS
     Route: 048
     Dates: start: 20100824, end: 20100921

REACTIONS (1)
  - Pneumonia [Fatal]

NARRATIVE: CASE EVENT DATE: 20100925
